FAERS Safety Report 9705094 (Version 1)
Quarter: 2013Q4

REPORT INFORMATION
  Report Type: Spontaneous
  Country: GB (occurrence: GB)
  Receive Date: 20131122
  Receipt Date: 20131122
  Transmission Date: 20140711
  Serious: Yes (Hospitalization)
  Sender: FDA-Public Use
  Company Number: GB-ACTAVIS-2013-21469

PATIENT
  Age: 58 Year
  Sex: Female
  Weight: 80 kg

DRUGS (6)
  1. DOCETAXEL (UNKNOWN) [Suspect]
     Indication: BREAST CANCER
     Dosage: 180 MG, DAILY, LAST DOSE PRIOR TO SAE ON 31/OCT/2012
     Route: 042
     Dates: start: 20121010
  2. DOCETAXEL (UNKNOWN) [Suspect]
     Dosage: 130 MG, DAILY
     Route: 042
     Dates: start: 20121121
  3. HERCEPTIN [Suspect]
     Indication: BREAST CANCER
     Dosage: 472.5 MG, DAILY, LAST DOSE PRIOR TO SAE ON 31/OCT/2012
     Route: 042
     Dates: start: 20121010
  4. CIPROFLOXACIN [Concomitant]
     Indication: PRODUCT USED FOR UNKNOWN INDICATION
     Dosage: UNK
     Route: 065
     Dates: start: 20121101, end: 20121105
  5. METOCLOPRAMIDE [Concomitant]
     Indication: PRODUCT USED FOR UNKNOWN INDICATION
     Dosage: UNK
     Route: 065
     Dates: start: 20121031, end: 20121105
  6. FLUOXETINE [Concomitant]
     Indication: PRODUCT USED FOR UNKNOWN INDICATION
     Dosage: UNK
     Route: 065
     Dates: start: 2011

REACTIONS (1)
  - Malaise [Recovered/Resolved]
